FAERS Safety Report 8119018-0 (Version None)
Quarter: 2012Q1

REPORT INFORMATION
  Report Type: 
  Country: None (occurrence: None)
  Receive Date: 20120207
  Receipt Date: 20120125
  Transmission Date: 20120608
  Serious: Yes (Hospitalization)
  Sender: FDA-Public Use
  Company Number: US-ELI_LILLY_AND_COMPANY-US201006001753

PATIENT
  Sex: Female

DRUGS (9)
  1. FORTEO [Suspect]
     Dosage: 20 UG, QD
  2. FORTEO [Suspect]
     Dosage: 20 UG, QD
  3. LORAZEPAM [Concomitant]
     Dosage: 1 MG, EACH EVENING
  4. FORTEO [Suspect]
     Indication: OSTEOPOROSIS
     Dosage: 20 UG, DAILY (1/D)
     Route: 058
     Dates: start: 20100505
  5. FORTEO [Suspect]
     Dosage: 20 UG, QD
  6. FOSAMAX [Concomitant]
  7. RECLAST [Concomitant]
  8. FORTEO [Suspect]
     Dosage: 20 UG, DAILY (1/D)
  9. FORTEO [Suspect]
     Dosage: 20 UG, DAILY (1/D)

REACTIONS (10)
  - HOSPITALISATION [None]
  - SOMNOLENCE [None]
  - DIZZINESS [None]
  - NIGHT SWEATS [None]
  - DYSPHONIA [None]
  - HEADACHE [None]
  - COUGH [None]
  - NASAL CONGESTION [None]
  - HYPERHIDROSIS [None]
  - INJECTION SITE RASH [None]
